FAERS Safety Report 5532466-8 (Version None)
Quarter: 2007Q4

REPORT INFORMATION
  Report Type: 
  Country: None (occurrence: None)
  Receive Date: 20071203
  Receipt Date: 20071121
  Transmission Date: 20080405
  Serious: Yes (Other)
  Sender: FDA-Public Use
  Company Number: FR-PFIZER INC-2007098405

PATIENT
  Age: 72 Year
  Sex: Female

DRUGS (5)
  1. TRIFLUCAN [Suspect]
     Indication: CANDIDIASIS
     Dates: start: 20071109, end: 20071114
  2. TRANXENE [Interacting]
  3. PAROXETINE [Interacting]
  4. SOLIAN [Concomitant]
  5. AKINETON [Concomitant]

REACTIONS (4)
  - DISORIENTATION [None]
  - DRUG INTERACTION [None]
  - MEMORY IMPAIRMENT [None]
  - SOMNOLENCE [None]
